FAERS Safety Report 25574343 (Version 1)
Quarter: 2025Q3

REPORT INFORMATION
  Report Type: Spontaneous
  Country: AU (occurrence: AU)
  Receive Date: 20250717
  Receipt Date: 20250717
  Transmission Date: 20251021
  Serious: Yes (Other)
  Sender: ORIENT PHARMA
  Company Number: None

PATIENT
  Age: 78 Year
  Sex: Female

DRUGS (3)
  1. VANCOMYCIN [Suspect]
     Active Substance: VANCOMYCIN
  2. CLINDAMYCIN [Suspect]
     Active Substance: CLINDAMYCIN
  3. DAPTOMYCIN [Suspect]
     Active Substance: DAPTOMYCIN

REACTIONS (3)
  - Anaphylactic reaction [Unknown]
  - Cardiac arrest [Unknown]
  - Rash [Unknown]
